FAERS Safety Report 4902328-5 (Version None)
Quarter: 2006Q1

REPORT INFORMATION
  Report Type: 
  Country: None (occurrence: None)
  Receive Date: 20060203
  Receipt Date: 20060203
  Transmission Date: 20060701
  Serious: No
  Sender: FDA-Public Use
  Company Number: None

PATIENT
  Age: 10 Year

DRUGS (1)
  1. BENZOCAINE, BUTAMBEN, AND TETRACAINE;CETACAINE TOPICAL [Suspect]
     Indication: PHARYNGITIS STREPTOCOCCAL
     Dosage: INTRAMUSCULAR
     Route: 030
     Dates: start: 20051209, end: 20051209

REACTIONS (2)
  - HYPERSENSITIVITY [None]
  - RASH [None]
